FAERS Safety Report 24606603 (Version 1)
Quarter: 2024Q4

REPORT INFORMATION
  Report Type: Spontaneous
  Country: GB (occurrence: GB)
  Receive Date: 20241112
  Receipt Date: 20241112
  Transmission Date: 20250115
  Serious: Yes (Other)
  Sender: TEVA
  Company Number: None

PATIENT
  Age: 39 Year
  Sex: Female
  Weight: 60 kg

DRUGS (1)
  1. PROMETHAZINE [Suspect]
     Active Substance: PROMETHAZINE HYDROCHLORIDE
     Indication: Insomnia
     Dosage: AT NIGHT
     Route: 065
     Dates: start: 20241102, end: 20241103

REACTIONS (1)
  - Akathisia [Recovered/Resolved]

NARRATIVE: CASE EVENT DATE: 20241102
